FAERS Safety Report 6821055-0 (Version None)
Quarter: 2010Q3

REPORT INFORMATION
  Report Type: 
  Country: None (occurrence: None)
  Receive Date: 20100707
  Receipt Date: 20070927
  Transmission Date: 20110219
  Serious: No
  Sender: FDA-Public Use
  Company Number: US-PFIZER INC-2007080220

PATIENT
  Sex: Female

DRUGS (2)
  1. ZOLOFT [Suspect]
     Indication: DEPRESSION
     Route: 048
     Dates: start: 20070601
  2. CHANTIX [Suspect]
     Indication: EX-TOBACCO USER

REACTIONS (2)
  - DRUG INEFFECTIVE [None]
  - NERVOUSNESS [None]
